FAERS Safety Report 7409482-4 (Version None)
Quarter: 2011Q2

REPORT INFORMATION
  Report Type: 
  Country: None (occurrence: None)
  Receive Date: 20110412
  Receipt Date: 20110331
  Transmission Date: 20111010
  Serious: Yes (Other)
  Sender: FDA-Public Use
  Company Number: PHHY2011DK27701

PATIENT
  Age: 49 Year
  Sex: Male
  Weight: 49 kg

DRUGS (1)
  1. SUCCINYLCHOLINE CHLORIDE [Suspect]
     Indication: MUSCLE RELAXANT THERAPY
     Dosage: 1.0 MG/KG

REACTIONS (2)
  - APNOEA [None]
  - HEPATIC CIRRHOSIS [None]
